FAERS Safety Report 24562773 (Version 2)
Quarter: 2024Q4

REPORT INFORMATION
  Report Type: Report from Study
  Country: US (occurrence: US)
  Receive Date: 20241029
  Receipt Date: 20241220
  Transmission Date: 20250115
  Serious: Yes (Congenital Anomaly, Other)
  Sender: ABBVIE
  Company Number: US-ABBVIE-5978859

PATIENT
  Sex: Male
  Weight: 3 kg

DRUGS (4)
  1. NORVIR [Suspect]
     Active Substance: RITONAVIR
     Indication: Maternal exposure timing unspecified
     Route: 064
  2. COMBIVIR [Suspect]
     Active Substance: LAMIVUDINE\ZIDOVUDINE
     Indication: Maternal exposure timing unspecified
     Route: 064
  3. REYATAZ [Suspect]
     Active Substance: ATAZANAVIR SULFATE
     Indication: Maternal exposure timing unspecified
     Route: 064
  4. RETROVIR [Suspect]
     Active Substance: ZIDOVUDINE
     Indication: Maternal exposure timing unspecified
     Route: 064

REACTIONS (11)
  - Pulmonary hypertension [Unknown]
  - Hepatomegaly [Unknown]
  - Patent ductus arteriosus [Unknown]
  - Coronary artery dilatation [Unknown]
  - Splenomegaly [Unknown]
  - Ventricular septal defect [Unknown]
  - Thalassaemia alpha [Unknown]
  - Hyperbilirubinaemia [Unknown]
  - Portal vein thrombosis [Unknown]
  - Thrombocytopenia [Unknown]
  - Foetal exposure during pregnancy [Unknown]
